FAERS Safety Report 8871022 (Version 3)
Quarter: 2012Q4

REPORT INFORMATION
  Report Type: 
  Country: JP (occurrence: JP)
  Receive Date: 20121029
  Receipt Date: 20121109
  Transmission Date: 20130627
  Serious: Yes (Other)
  Sender: FDA-Public Use
  Company Number: PHHY2012JP096425

PATIENT
  Sex: Male

DRUGS (3)
  1. ZOMETA [Suspect]
     Indication: METASTASES TO BONE
     Route: 041
  2. BICALUTAMIDE [Suspect]
     Route: 048
  3. ZOLADEX [Suspect]

REACTIONS (1)
  - Chronic obstructive pulmonary disease [Unknown]
